FAERS Safety Report 13665717 (Version 1)
Quarter: 2017Q2

REPORT INFORMATION
  Report Type: Spontaneous
  Country: FR (occurrence: FR)
  Receive Date: 20170619
  Receipt Date: 20170619
  Transmission Date: 20170830
  Serious: Yes (Other)
  Sender: FDA-Public Use
  Company Number: FR-BAYER-2017-114214

PATIENT
  Age: 32 Year
  Sex: Female

DRUGS (1)
  1. MIRENA [Suspect]
     Active Substance: LEVONORGESTREL
     Indication: CONTRACEPTION
     Dosage: 20 MCG/24HR, CONT
     Route: 015
     Dates: start: 20080401

REACTIONS (21)
  - Back pain [Not Recovered/Not Resolved]
  - Urinary tract infection [Not Recovered/Not Resolved]
  - Hyperhidrosis [Not Recovered/Not Resolved]
  - Amnesia [Not Recovered/Not Resolved]
  - Weight increased [Not Recovered/Not Resolved]
  - Sleep disorder [Not Recovered/Not Resolved]
  - Headache [Not Recovered/Not Resolved]
  - Anxiety [Not Recovered/Not Resolved]
  - Speech disorder [Not Recovered/Not Resolved]
  - Dyspareunia [Not Recovered/Not Resolved]
  - Dyspepsia [Not Recovered/Not Resolved]
  - Nervousness [Not Recovered/Not Resolved]
  - Alopecia [Not Recovered/Not Resolved]
  - Abdominal pain upper [Not Recovered/Not Resolved]
  - Hypersensitivity [Not Recovered/Not Resolved]
  - Fatigue [Not Recovered/Not Resolved]
  - Fluid retention [Not Recovered/Not Resolved]
  - Myalgia [Not Recovered/Not Resolved]
  - Depressed mood [Not Recovered/Not Resolved]
  - Sleep apnoea syndrome [Not Recovered/Not Resolved]
  - Vertigo [Not Recovered/Not Resolved]

NARRATIVE: CASE EVENT DATE: 2008
